FAERS Safety Report 9192575 (Version 2)
Quarter: 2014Q1

REPORT INFORMATION
  Report Type: Spontaneous
  Country: US (occurrence: US)
  Receive Date: 20130327
  Receipt Date: 20140124
  Transmission Date: 20141002
  Serious: No
  Sender: FDA-Public Use
  Company Number: US-PFIZER INC-2013097126

PATIENT
  Age: 65 Year
  Sex: Female

DRUGS (26)
  1. XELJANZ [Suspect]
     Dosage: 5 MG, 2X/DAY
     Route: 048
  2. AMLODIPINE [Concomitant]
     Dosage: 5 MG, UNK
  3. LEUCOVORIN CALCIUM [Concomitant]
     Dosage: 10 MG, UNK
  4. METHOTREXATE [Concomitant]
     Dosage: 2.5 MG, UNK
  5. SIMVASTATIN [Concomitant]
     Dosage: 20 MG, UNK
  6. SIMVASTATIN [Concomitant]
     Dosage: 50 MG, 1X/DAY
  7. PRILOSEC [Concomitant]
     Dosage: 20 MG, 1X/DAY
  8. VITAMIN D [Concomitant]
     Dosage: 1 DF, 1000
  9. CALCIUM 600 + D [Concomitant]
     Dosage: UNK
  10. ASPIRIN [Concomitant]
     Dosage: 81 MG, UNK
  11. FOLIC ACID [Concomitant]
     Dosage: UNK
  12. ALEVE [Concomitant]
     Dosage: UNK
  13. TYLENOL [Concomitant]
     Dosage: 500 UNK, UNK
  14. FISH OIL [Concomitant]
     Dosage: 100 UNK, TWICE A DAY
  15. ENALAPRIL [Concomitant]
     Dosage: 10 MG, ONCE A DAY
  16. SUDAFED [Concomitant]
     Dosage: 30 G, AS NEEDED
  17. HUMIRA [Concomitant]
     Dosage: 40 UNK, UNK
  18. ASA [Concomitant]
     Dosage: 325 UNK, TID
  19. PARAFFIN [Concomitant]
     Dosage: UNK
  20. DEXAMETHASONE [Concomitant]
     Dosage: UNK
  21. DILTIAZEM [Concomitant]
     Dosage: 240 UNK, UNK
  22. SEAFLOX [Concomitant]
     Dosage: UNK
  23. TICOVAC [Concomitant]
     Dosage: 5 G, WEEKLY
  24. FENTANYL [Concomitant]
     Dosage: 200 G, UNK
  25. BIOTIN [Concomitant]
     Dosage: UNK
  26. ACULAR EYE DROPS [Concomitant]
     Dosage: UNK

REACTIONS (3)
  - Urticaria [Recovering/Resolving]
  - Solar urticaria [Unknown]
  - Urticaria thermal [Unknown]
